FAERS Safety Report 8200300-3 (Version None)
Quarter: 2012Q1

REPORT INFORMATION
  Report Type: 
  Country: None (occurrence: None)
  Receive Date: 20120312
  Receipt Date: 20120302
  Transmission Date: 20120608
  Serious: Yes (Other)
  Sender: FDA-Public Use
  Company Number: CN-BAYER-2012-022624

PATIENT
  Age: 45 Year
  Sex: Female

DRUGS (1)
  1. PRIMOVIST [Suspect]
     Dosage: UNK
     Route: 042
     Dates: start: 20120301, end: 20120301

REACTIONS (3)
  - LARYNGEAL OEDEMA [None]
  - LACRIMATION INCREASED [None]
  - URTICARIA [None]
